FAERS Safety Report 25520321 (Version 2)
Quarter: 2025Q3

REPORT INFORMATION
  Report Type: Spontaneous
  Country: RU (occurrence: RU)
  Receive Date: 20250704
  Receipt Date: 20250724
  Transmission Date: 20251020
  Serious: Yes (Hospitalization, Other)
  Sender: GLAXOSMITHKLINE
  Company Number: RU-GSK-RU2025EME081173

PATIENT

DRUGS (1)
  1. ALBUTEROL [Suspect]
     Active Substance: ALBUTEROL
     Indication: Product used for unknown indication

REACTIONS (7)
  - Loss of consciousness [Recovering/Resolving]
  - Cyanosis [Recovering/Resolving]
  - Oxygen saturation decreased [Recovering/Resolving]
  - Coma [Recovering/Resolving]
  - Asthmatic crisis [Recovering/Resolving]
  - Respiratory failure [Recovering/Resolving]
  - Overdose [Unknown]
